FAERS Safety Report 14926878 (Version 1)
Quarter: 2018Q2

REPORT INFORMATION
  Report Type: Spontaneous
  Country: US (occurrence: US)
  Receive Date: 20180523
  Receipt Date: 20180523
  Transmission Date: 20180711
  Serious: No
  Sender: FDA-Public Use
  Company Number: US-AUROBINDO-AUR-APU-2018-009442

PATIENT
  Sex: Female

DRUGS (1)
  1. FLECAINIDE ACETATE TABLETS USP 50MG [Suspect]
     Active Substance: FLECAINIDE ACETATE
     Indication: ARRHYTHMIA
     Dosage: 75 MG FOR EVERY 12 HOURS (ONE 50 MG TABLET AND ONE HALF TABLET)
     Route: 065

REACTIONS (1)
  - Drug administration error [Unknown]
